FAERS Safety Report 16865250 (Version 1)
Quarter: 2019Q3

REPORT INFORMATION
  Report Type: Spontaneous
  Country: GB (occurrence: GB)
  Receive Date: 20190930
  Receipt Date: 20190930
  Transmission Date: 20191005
  Serious: Yes (Hospitalization, Other)
  Sender: FDA-Public Use
  Company Number: GB-SUN PHARMACEUTICAL INDUSTRIES LTD-2019R1-220526

PATIENT
  Age: 51 Year
  Sex: Female

DRUGS (1)
  1. BUPRENORPHINE. [Suspect]
     Active Substance: BUPRENORPHINE
     Indication: CHEST PAIN
     Dosage: UNK
     Route: 065
     Dates: start: 2013, end: 2018

REACTIONS (3)
  - Incontinence [Recovering/Resolving]
  - Cognitive disorder [Recovering/Resolving]
  - Seizure [Recovering/Resolving]
